FAERS Safety Report 4360671-5 (Version None)
Quarter: 2004Q2

REPORT INFORMATION
  Report Type: 
  Country: None (occurrence: None)
  Receive Date: 20040514
  Receipt Date: 20040428
  Transmission Date: 20050107
  Serious: Yes (Hospitalization)
  Sender: FDA-Public Use
  Company Number: 196810

PATIENT
  Age: 63 Year
  Sex: Female

DRUGS (1)
  1. AVONEX ^BIOGEN^ [Suspect]
     Indication: MULTIPLE SCLEROSIS
     Dosage: 30 MCG QW IM
     Route: 030
     Dates: start: 20030206

REACTIONS (4)
  - CARDIAC FAILURE [None]
  - HAEMOPTYSIS [None]
  - PERICARDIAL EFFUSION [None]
  - TRIPLE VESSEL BYPASS GRAFT [None]
